FAERS Safety Report 21838646 (Version 1)
Quarter: 2023Q1

REPORT INFORMATION
  Report Type: Spontaneous
  Country: US (occurrence: None)
  Receive Date: 20230106
  Receipt Date: 20230106
  Transmission Date: 20230418
  Serious: Yes (Hospitalization)
  Sender: FDA-Public Use
  Company Number: None

PATIENT
  Sex: Male
  Weight: 73.03 kg

DRUGS (10)
  1. ABIRATERONE ACETATE [Suspect]
     Active Substance: ABIRATERONE ACETATE
     Indication: Prostate cancer
     Dosage: FREQUENCY : DAILY;?
     Route: 048
     Dates: start: 20220916
  2. COENZYME Q10 [Concomitant]
     Active Substance: DIETARY SUPPLEMENT\UBIDECARENONE
  3. IBUPROFEN [Concomitant]
     Active Substance: IBUPROFEN
  4. LOVASTATIN [Concomitant]
     Active Substance: LOVASTATIN
  5. LUPRON [Concomitant]
     Active Substance: LEUPROLIDE ACETATE
  6. VITAMINS [Concomitant]
     Active Substance: VITAMINS
  7. NAPROXEN [Concomitant]
     Active Substance: NAPROXEN
  8. HERBALS\TURMERIC [Concomitant]
     Active Substance: HERBALS\TURMERIC
  9. VITAMIN B12 [Concomitant]
     Active Substance: CYANOCOBALAMIN
  10. VITAMIN D3 [Concomitant]
     Active Substance: CHOLECALCIFEROL

REACTIONS (3)
  - Malignant neoplasm progression [None]
  - Metastases to bladder [None]
  - Metastases to rectum [None]
